FAERS Safety Report 6718492-1 (Version None)
Quarter: 2010Q2

REPORT INFORMATION
  Report Type: 
  Country: None (occurrence: None)
  Receive Date: 20100510
  Receipt Date: 20100430
  Transmission Date: 20101027
  Serious: Yes (Other)
  Sender: FDA-Public Use
  Company Number: US-PFIZER INC-2010055412

PATIENT
  Sex: Female
  Weight: 91.61 kg

DRUGS (4)
  1. LIPITOR [Suspect]
     Indication: BLOOD CHOLESTEROL INCREASED
     Dosage: 80 MG, 1X/DAY
     Route: 048
     Dates: start: 20100301
  2. GABAPENTIN [Suspect]
     Indication: FIBROMYALGIA
     Dosage: UNK
  3. INTERFERON [Suspect]
     Indication: HEPATITIS C
     Dosage: UNK
  4. VITAMIN B6 [Suspect]

REACTIONS (7)
  - AGITATION [None]
  - BLOOD CHOLESTEROL INCREASED [None]
  - DRUG ADMINISTRATION ERROR [None]
  - DRUG INEFFECTIVE [None]
  - NIGHTMARE [None]
  - RESTLESS LEGS SYNDROME [None]
  - SLEEP TERROR [None]
